FAERS Safety Report 26180247 (Version 1)
Quarter: 2025Q4

REPORT INFORMATION
  Report Type: Spontaneous
  Country: US (occurrence: US)
  Receive Date: 20251219
  Receipt Date: 20251219
  Transmission Date: 20260118
  Serious: No
  Sender: MERCK SHARP & DOHME LLC
  Company Number: US-009507513-2355836

PATIENT
  Age: 11 Year
  Weight: 65.9 kg

DRUGS (3)
  1. ERTAPENEM [Suspect]
     Active Substance: ERTAPENEM
     Indication: Staphylococcal bacteraemia
     Dosage: 1000 MG WAS ADMINISTERED EVERY 24 HOURS FOR 7 DAYS,
     Route: 042
  2. OXACILLIN [Concomitant]
     Active Substance: OXACILLIN SODIUM
     Route: 042
  3. OXACILLIN [Concomitant]
     Active Substance: OXACILLIN SODIUM
     Route: 042

REACTIONS (1)
  - Off label use [Unknown]
